FAERS Safety Report 7560462-8 (Version None)
Quarter: 2011Q2

REPORT INFORMATION
  Report Type: 
  Country: None (occurrence: None)
  Receive Date: 20110621
  Receipt Date: 20110607
  Transmission Date: 20111010
  Serious: Yes (Life-Threatening, Hospitalization, Other)
  Sender: FDA-Public Use
  Company Number: IE-GENENTECH-319579

PATIENT
  Sex: Male

DRUGS (10)
  1. CHLORPHENIRAMINE MALEATE [Suspect]
     Indication: ANAPHYLACTIC REACTION
     Dosage: 10 MG, UNK
     Route: 042
  2. RITUXAN [Suspect]
     Indication: CHRONIC LYMPHOCYTIC LEUKAEMIA
     Dosage: 375 MG/M2, UNK
     Route: 042
     Dates: start: 20110314
  3. HYDROCORTISONE [Concomitant]
     Indication: ANAPHYLACTIC REACTION
     Dosage: 100 MG, UNK
     Route: 042
  4. VINCRISTINE [Concomitant]
     Indication: CHRONIC LYMPHOCYTIC LEUKAEMIA
     Dosage: 2 MG, UNK
     Route: 042
  5. LOMUSTINE [Concomitant]
     Indication: CHRONIC LYMPHOCYTIC LEUKAEMIA
     Dosage: UNK
  6. CYCLOPHOSPHAMIDE [Concomitant]
     Indication: CHRONIC LYMPHOCYTIC LEUKAEMIA
     Dosage: 750 MG/M2, UNK
     Route: 042
  7. PREDNISONE [Concomitant]
     Indication: CHRONIC LYMPHOCYTIC LEUKAEMIA
     Dosage: 1 MG/M2, UNK
     Route: 048
  8. RITUXAN [Suspect]
     Dosage: UNK
     Route: 042
     Dates: start: 20110404
  9. RITUXAN [Suspect]
     Dosage: UNK
     Route: 042
     Dates: start: 20110427
  10. PROCARBAZINE HYDROCHLORIDE [Concomitant]
     Indication: CHRONIC LYMPHOCYTIC LEUKAEMIA
     Dosage: UNK

REACTIONS (4)
  - INFUSION RELATED REACTION [None]
  - PYREXIA [None]
  - MALAISE [None]
  - HYPERSENSITIVITY [None]
